FAERS Safety Report 24919891 (Version 1)
Quarter: 2025Q1

REPORT INFORMATION
  Report Type: Report from Study
  Country: US (occurrence: US)
  Receive Date: 20250204
  Receipt Date: 20250204
  Transmission Date: 20250409
  Serious: No
  Sender: EXELIXIS
  Company Number: US-EXELIXIS-CABO-24072508

PATIENT
  Sex: Male
  Weight: 80 kg

DRUGS (10)
  1. CABOMETYX [Suspect]
     Active Substance: CABOZANTINIB S-MALATE
     Indication: Renal cell carcinoma
     Dosage: 20 MG, QD
     Route: 048
     Dates: start: 20220211
  2. OPDIVO [Concomitant]
     Active Substance: NIVOLUMAB
  3. FLUOROURACIL [Concomitant]
     Active Substance: FLUOROURACIL
  4. ELIQUIS [Concomitant]
     Active Substance: APIXABAN
  5. LATANOPROST [Concomitant]
     Active Substance: LATANOPROST
  6. TAMSULOSIN [Concomitant]
     Active Substance: TAMSULOSIN
  7. PANTOPRAZOLE [Concomitant]
     Active Substance: PANTOPRAZOLE
  8. IRON [Concomitant]
     Active Substance: IRON
  9. FISH OIL [Concomitant]
     Active Substance: FISH OIL
  10. ROSUVASTATIN [Concomitant]
     Active Substance: ROSUVASTATIN

REACTIONS (1)
  - Retinal disorder [Unknown]
